FAERS Safety Report 11713965 (Version 2)
Quarter: 2015Q4

REPORT INFORMATION
  Report Type: Spontaneous
  Country: JP (occurrence: JP)
  Receive Date: 20151109
  Receipt Date: 20151226
  Transmission Date: 20160304
  Serious: Yes (Hospitalization)
  Sender: FDA-Public Use
  Company Number: PHJP2015JP015463

PATIENT
  Age: 69 Year
  Sex: Female
  Weight: 41 kg

DRUGS (2)
  1. AFINITOR [Suspect]
     Active Substance: EVEROLIMUS
     Indication: BREAST CANCER RECURRENT
     Dosage: 10 MG, QD
     Route: 048
     Dates: start: 20150619, end: 20150721
  2. AROMASIN [Concomitant]
     Active Substance: EXEMESTANE
     Indication: METASTASES TO LYMPH NODES
     Dosage: 25 MG, QD
     Route: 065
     Dates: start: 20150619, end: 20150721

REACTIONS (10)
  - Ventricular tachycardia [Recovered/Resolved]
  - Hyperglycaemia [Not Recovered/Not Resolved]
  - Malaise [Unknown]
  - Bundle branch block right [Recovered/Resolved]
  - Thirst [Unknown]
  - Chest discomfort [Unknown]
  - Ventricular extrasystoles [Recovered/Resolved]
  - Pneumonia [Unknown]
  - Interstitial lung disease [Recovering/Resolving]
  - Dyspnoea [Unknown]

NARRATIVE: CASE EVENT DATE: 201507
